FAERS Safety Report 23586711 (Version 1)
Quarter: 2024Q1

REPORT INFORMATION
  Report Type: Spontaneous
  Country: US (occurrence: US)
  Receive Date: 20240301
  Receipt Date: 20240301
  Transmission Date: 20240410
  Serious: Yes (Other)
  Sender: FDA-Public Use
  Company Number: US-PFIZER INC-202400053153

PATIENT
  Age: 45 Year
  Sex: Female

DRUGS (1)
  1. XELJANZ XR [Suspect]
     Active Substance: TOFACITINIB CITRATE
     Indication: Rheumatoid arthritis
     Dosage: 11 MG 1 TAB, ONCE A DAY
     Route: 048

REACTIONS (3)
  - Leukopenia [Unknown]
  - Dyspepsia [Recovered/Resolved]
  - Musculoskeletal discomfort [Unknown]
